FAERS Safety Report 18437390 (Version 1)
Quarter: 2020Q4

REPORT INFORMATION
  Report Type: Spontaneous
  Country: US (occurrence: US)
  Receive Date: 20201028
  Receipt Date: 20201028
  Transmission Date: 20210114
  Serious: No
  Sender: FDA-Public Use
  Company Number: US-JNJFOC-A-US2019-196600

PATIENT
  Age: 66 Year
  Sex: Female
  Weight: 57.6 kg

DRUGS (3)
  1. REMODULIN [Suspect]
     Active Substance: TREPROSTINIL
     Indication: PRODUCT USED FOR UNKNOWN INDICATION
     Route: 065
  2. ADCIRCA [Concomitant]
     Active Substance: TADALAFIL
  3. OPSUMIT [Suspect]
     Active Substance: MACITENTAN
     Indication: PULMONARY ARTERIAL HYPERTENSION
     Dosage: 10 MG, QD
     Route: 048

REACTIONS (8)
  - Cold sweat [Recovering/Resolving]
  - Contusion [Unknown]
  - Device issue [Unknown]
  - Road traffic accident [Unknown]
  - Catheter site infection [Unknown]
  - Feeling abnormal [Recovering/Resolving]
  - Pain [Unknown]
  - Device breakage [Unknown]

NARRATIVE: CASE EVENT DATE: 20190930
